FAERS Safety Report 8384003 (Version 4)
Quarter: 2013Q1

REPORT INFORMATION
  Report Type: Report from Study
  Country: US (occurrence: US)
  Receive Date: 20120201
  Receipt Date: 20130116
  Transmission Date: 20140127
  Serious: Yes (Death, Hospitalization, Other)
  Sender: FDA-Public Use
  Company Number: US-ABBOTT-12P-163-0897566-00

PATIENT
  Age: 82 Year
  Sex: Female
  Weight: 59.02 kg

DRUGS (9)
  1. HUMIRA 40 MG/0.8 ML PEN [Suspect]
     Indication: COLITIS ULCERATIVE
     Dates: start: 20111227, end: 20111227
  2. HUMIRA 40 MG/0.8 ML PEN [Suspect]
     Dates: start: 20120110, end: 20120110
  3. LEXAPRO [Concomitant]
     Indication: PRODUCT USED FOR UNKNOWN INDICATION
  4. IRON [Concomitant]
     Indication: PRODUCT USED FOR UNKNOWN INDICATION
  5. NITRO PATCH [Concomitant]
     Indication: PRODUCT USED FOR UNKNOWN INDICATION
  6. WATER PILLS [Concomitant]
     Indication: PRODUCT USED FOR UNKNOWN INDICATION
  7. BLOOD PRESSURE MEDICATIONS [Concomitant]
     Indication: PRODUCT USED FOR UNKNOWN INDICATION
  8. PARKINSON^S MEDICATIONS [Concomitant]
     Indication: PARKINSON^S DISEASE
  9. COLITIS MEDICATIONS [Concomitant]
     Indication: COLITIS

REACTIONS (12)
  - Death [Fatal]
  - Abdominal pain [Not Recovered/Not Resolved]
  - Metastatic neoplasm [Not Recovered/Not Resolved]
  - Gastrointestinal carcinoma [Not Recovered/Not Resolved]
  - Off label use [Unknown]
  - Malignant neoplasm progression [Unknown]
  - General physical health deterioration [Unknown]
  - Weight decreased [Unknown]
  - Fatigue [Unknown]
  - Colitis [Unknown]
  - Nausea [Unknown]
  - Pleural effusion [Unknown]
